FAERS Safety Report 20124233 (Version 1)
Quarter: 2021Q4

REPORT INFORMATION
  Report Type: Spontaneous
  Country: US (occurrence: US)
  Receive Date: 20211129
  Receipt Date: 20211129
  Transmission Date: 20220304
  Serious: Yes (Other)
  Sender: FDA-Public Use
  Company Number: US-GLAXOSMITHKLINE-US2021GSK244379

PATIENT
  Sex: Female

DRUGS (24)
  1. ZANTAC [Suspect]
     Active Substance: RANITIDINE HYDROCHLORIDE
     Indication: Dyspepsia
     Dosage: 75 MG, QD
     Route: 065
     Dates: start: 198301, end: 199906
  2. ZANTAC [Suspect]
     Active Substance: RANITIDINE HYDROCHLORIDE
     Dosage: 150 MG, QD
     Route: 065
     Dates: start: 198301, end: 199906
  3. ZANTAC [Suspect]
     Active Substance: RANITIDINE HYDROCHLORIDE
     Dosage: 75 MG, 2 X^S DAILY
     Route: 065
     Dates: start: 198301, end: 199906
  4. ZANTAC [Suspect]
     Active Substance: RANITIDINE HYDROCHLORIDE
     Dosage: 150 MG, 2 X^S DAILY
     Route: 065
     Dates: start: 198301, end: 199906
  5. ZANTAC [Suspect]
     Active Substance: RANITIDINE HYDROCHLORIDE
     Indication: Dyspepsia
     Dosage: 75 MG, QD
     Route: 065
     Dates: start: 198301, end: 199906
  6. ZANTAC [Suspect]
     Active Substance: RANITIDINE HYDROCHLORIDE
     Dosage: 150 MG, QD
     Route: 065
     Dates: start: 198301, end: 199906
  7. ZANTAC [Suspect]
     Active Substance: RANITIDINE HYDROCHLORIDE
     Dosage: 75 MG, 2 X^S DAILY
     Route: 065
     Dates: start: 198301, end: 199906
  8. ZANTAC [Suspect]
     Active Substance: RANITIDINE HYDROCHLORIDE
     Dosage: 150 MG, 2 X^S DAILY
     Route: 065
     Dates: start: 198301, end: 199906
  9. RANITIDINE HYDROCHLORIDE [Suspect]
     Active Substance: RANITIDINE HYDROCHLORIDE
     Indication: Dyspepsia
     Dosage: 75 MG, QD
     Route: 065
     Dates: start: 198301, end: 199906
  10. RANITIDINE HYDROCHLORIDE [Suspect]
     Active Substance: RANITIDINE HYDROCHLORIDE
     Dosage: 150 MG, QD
     Route: 065
     Dates: start: 198301, end: 199906
  11. RANITIDINE HYDROCHLORIDE [Suspect]
     Active Substance: RANITIDINE HYDROCHLORIDE
     Dosage: 75 MG, 2 X^S DAILY
     Route: 065
     Dates: start: 198301, end: 199906
  12. RANITIDINE HYDROCHLORIDE [Suspect]
     Active Substance: RANITIDINE HYDROCHLORIDE
     Dosage: 150 MG, 2 X^S DAILY
     Route: 065
     Dates: start: 198301, end: 199906
  13. RANITIDINE HYDROCHLORIDE [Suspect]
     Active Substance: RANITIDINE HYDROCHLORIDE
     Indication: Dyspepsia
     Dosage: 75 MG, QD
     Route: 065
     Dates: start: 198301, end: 199906
  14. RANITIDINE HYDROCHLORIDE [Suspect]
     Active Substance: RANITIDINE HYDROCHLORIDE
     Dosage: 150 MG, QD
     Route: 065
     Dates: start: 198301, end: 199906
  15. RANITIDINE HYDROCHLORIDE [Suspect]
     Active Substance: RANITIDINE HYDROCHLORIDE
     Dosage: 75 MG, 2 X^S DAILY
     Route: 065
     Dates: start: 198301, end: 199906
  16. RANITIDINE HYDROCHLORIDE [Suspect]
     Active Substance: RANITIDINE HYDROCHLORIDE
     Dosage: 150 MG, 2 X^S DAILY
     Route: 065
     Dates: start: 198301, end: 199906
  17. RANITIDINE [Suspect]
     Active Substance: RANITIDINE
     Indication: Dyspepsia
     Dosage: 75 MG, QD
     Route: 065
     Dates: start: 198301, end: 199906
  18. RANITIDINE [Suspect]
     Active Substance: RANITIDINE
     Dosage: 150 MG, QD
     Route: 065
     Dates: start: 198301, end: 199906
  19. RANITIDINE [Suspect]
     Active Substance: RANITIDINE
     Dosage: 75 MG, 2 X^S DAILY
     Route: 065
     Dates: start: 198301, end: 199906
  20. RANITIDINE [Suspect]
     Active Substance: RANITIDINE
     Dosage: 150 MG, 2 X^S DAILY
     Route: 065
     Dates: start: 198301, end: 199906
  21. RANITIDINE [Suspect]
     Active Substance: RANITIDINE
     Indication: Dyspepsia
     Dosage: 75 MG, QD
     Route: 065
     Dates: start: 198301, end: 199906
  22. RANITIDINE [Suspect]
     Active Substance: RANITIDINE
     Dosage: 150 MG, QD
     Route: 065
     Dates: start: 198301, end: 199906
  23. RANITIDINE [Suspect]
     Active Substance: RANITIDINE
     Dosage: 75 MG, 2 X^S DAILY
     Route: 065
     Dates: start: 198301, end: 199906
  24. RANITIDINE [Suspect]
     Active Substance: RANITIDINE
     Dosage: 150 MG, 2 X^S DAILY
     Route: 065
     Dates: start: 198301, end: 199906

REACTIONS (1)
  - Bladder cancer [Unknown]
